FAERS Safety Report 7240759-1 (Version None)
Quarter: 2011Q1

REPORT INFORMATION
  Report Type: 
  Country: None (occurrence: None)
  Receive Date: 20110124
  Receipt Date: 20101014
  Transmission Date: 20110831
  Serious: No
  Sender: FDA-Public Use
  Company Number: US-BAYER-201022577BCC

PATIENT
  Sex: Male
  Weight: 95.455 kg

DRUGS (1)
  1. ALEVE [Suspect]
     Indication: BACK PAIN
     Dosage: 2 DF, UNK
     Dates: start: 20101007

REACTIONS (1)
  - ABDOMINAL PAIN [None]
